FAERS Safety Report 5690427-2 (Version None)
Quarter: 2008Q1

REPORT INFORMATION
  Report Type: 
  Country: None (occurrence: None)
  Receive Date: 20080331
  Receipt Date: 20080331
  Transmission Date: 20080703
  Serious: No
  Sender: FDA-Public Use
  Company Number: None

PATIENT
  Age: 64 Year
  Sex: Male

DRUGS (1)
  1. PACLITAXEL [Suspect]
     Indication: NON-SMALL CELL LUNG CANCER
     Dosage: 80MG ONCE IV
     Route: 042
     Dates: start: 20080320, end: 20080320

REACTIONS (3)
  - BRONCHOSPASM [None]
  - HYPERTENSION [None]
  - SYNCOPE [None]
